FAERS Safety Report 22333016 (Version 6)
Quarter: 2024Q1

REPORT INFORMATION
  Report Type: Spontaneous
  Country: US (occurrence: US)
  Receive Date: 20230517
  Receipt Date: 20240103
  Transmission Date: 20240410
  Serious: Yes (Hospitalization)
  Sender: FDA-Public Use
  Company Number: US-PFIZER INC-202300190758

PATIENT
  Age: 83 Year
  Sex: Male
  Weight: 89.36 kg

DRUGS (4)
  1. VYNDAMAX [Suspect]
     Active Substance: TAFAMIDIS
     Indication: Cardiac amyloidosis
     Dosage: 61 MG, 1X/DAY(IN THE EVENING)
     Route: 048
     Dates: start: 2022
  2. VYNDAMAX [Suspect]
     Active Substance: TAFAMIDIS
     Dosage: 61 MG, 1X/DAY
     Route: 048
     Dates: start: 202211
  3. VYNDAMAX [Suspect]
     Active Substance: TAFAMIDIS
     Dosage: 61 MILLIGRAM; ORALLY; ONCE A DAY
     Route: 048
     Dates: start: 2022
  4. VYNDAMAX [Suspect]
     Active Substance: TAFAMIDIS
     Dosage: 61 MG, 1X/DAY(IN THE EVENING)
     Route: 048
     Dates: start: 2023

REACTIONS (3)
  - Arthritis [Unknown]
  - Fatigue [Unknown]
  - Body height decreased [Unknown]

NARRATIVE: CASE EVENT DATE: 20230501
